FAERS Safety Report 18412220 (Version 1)
Quarter: 2020Q4

REPORT INFORMATION
  Report Type: Spontaneous
  Country: IT (occurrence: IT)
  Receive Date: 20201021
  Receipt Date: 20201021
  Transmission Date: 20210114
  Serious: Yes (Hospitalization, Other)
  Sender: FDA-Public Use
  Company Number: IT-MYLANLABS-2020M1088474

PATIENT
  Age: 47 Year
  Sex: Male

DRUGS (5)
  1. CITALOPRAM [Suspect]
     Active Substance: CITALOPRAM HYDROBROMIDE
     Indication: MENTAL DISORDER
     Dosage: UNK
     Route: 065
  2. VENLAFAXINE [Suspect]
     Active Substance: VENLAFAXINE HYDROCHLORIDE
     Dosage: UNK
  3. CATHINONE [Concomitant]
     Active Substance: CATHINONE
     Dosage: UNK
  4. VENLAFAXINE [Suspect]
     Active Substance: VENLAFAXINE HYDROCHLORIDE
     Indication: MENTAL DISORDER
     Dosage: UNK
  5. CITALOPRAM [Suspect]
     Active Substance: CITALOPRAM HYDROBROMIDE
     Dosage: UNK
     Route: 065

REACTIONS (8)
  - Psychomotor hyperactivity [Unknown]
  - Tremor [Unknown]
  - Mydriasis [Unknown]
  - Respiratory failure [Unknown]
  - Substance abuse [Unknown]
  - Tachycardia [Unknown]
  - Confusional state [Unknown]
  - Bradypnoea [Unknown]
